FAERS Safety Report 5869936-9 (Version None)
Quarter: 2008Q3

REPORT INFORMATION
  Report Type: 
  Country: None (occurrence: None)
  Receive Date: 20080904
  Receipt Date: 20080828
  Transmission Date: 20090109
  Serious: Yes (Death)
  Sender: FDA-Public Use
  Company Number: PHHY2008AR19563

PATIENT
  Sex: Female

DRUGS (1)
  1. DIOVAN TRIPLE [Suspect]
     Indication: HYPERTENSION
     Dosage: 160 MG
     Dates: start: 20080715

REACTIONS (1)
  - MYOCARDIAL INFARCTION [None]
